FAERS Safety Report 8924741 (Version 1)
Quarter: 2012Q4

REPORT INFORMATION
  Report Type: 
  Country: US (occurrence: US)
  Receive Date: 20121126
  Receipt Date: 20121126
  Transmission Date: 20130627
  Serious: No
  Sender: FDA-Public Use
  Company Number: US-PFIZER INC-2012292482

PATIENT
  Age: 50 Year
  Sex: Male

DRUGS (2)
  1. NITROSTAT [Suspect]
     Indication: CHEST PAIN
     Dosage: UNK
     Dates: start: 2007
  2. NITROSTAT [Suspect]
     Indication: ANGINA PECTORIS

REACTIONS (1)
  - Headache [Not Recovered/Not Resolved]
